FAERS Safety Report 8466466 (Version 5)
Quarter: 2013Q3

REPORT INFORMATION
  Report Type: Spontaneous
  Country: US (occurrence: US)
  Receive Date: 20120319
  Receipt Date: 20130925
  Transmission Date: 20140515
  Serious: Yes (Other)
  Sender: FDA-Public Use
  Company Number: US-ROCHE-1047357

PATIENT
  Age: 62 Year
  Sex: Female
  Weight: 54.93 kg

DRUGS (1)
  1. ACCUTANE [Suspect]
     Indication: ACNE
     Route: 065
     Dates: start: 1989, end: 1990

REACTIONS (6)
  - Colitis ulcerative [Unknown]
  - Depression [Not Recovered/Not Resolved]
  - Injury [Unknown]
  - Clostridium difficile colitis [Recovered/Resolved]
  - Large intestine polyp [Unknown]
  - Fat embolism [Unknown]
